FAERS Safety Report 10390903 (Version 3)
Quarter: 2014Q3

REPORT INFORMATION
  Report Type: Report from Study
  Country: US (occurrence: US)
  Receive Date: 20140818
  Receipt Date: 20140826
  Transmission Date: 20150326
  Serious: Yes (Death)
  Sender: FDA-Public Use
  Company Number: US-EXELIXIS-CABO-14004507

PATIENT
  Age: 82 Year
  Sex: Female

DRUGS (12)
  1. LATANOPROST. [Concomitant]
     Active Substance: LATANOPROST
  2. TRAMADOL [Concomitant]
     Active Substance: TRAMADOL
  3. TYKERB [Concomitant]
     Active Substance: LAPATINIB DITOSYLATE
  4. FLUCONAZOLE. [Concomitant]
     Active Substance: FLUCONAZOLE
  5. MERIVA [Concomitant]
  6. LEVOTHYROXINE [Concomitant]
     Active Substance: LEVOTHYROXINE
  7. PREDNISONE. [Concomitant]
     Active Substance: PREDNISONE
  8. CABOZANTINIB [Suspect]
     Active Substance: CABOZANTINIB
     Indication: RENAL CANCER
     Dosage: 40 MG, QD
     Route: 048
     Dates: start: 20140618
  9. AMLODIPINE [Concomitant]
     Active Substance: AMLODIPINE BESYLATE
  10. MORPHINE [Concomitant]
     Active Substance: MORPHINE
  11. ATENOLOL. [Concomitant]
     Active Substance: ATENOLOL
  12. TIMOLO [Concomitant]

REACTIONS (5)
  - Diarrhoea [Unknown]
  - Malignant neoplasm progression [Fatal]
  - Off label use [Unknown]
  - Nausea [Unknown]
  - Candida infection [Unknown]

NARRATIVE: CASE EVENT DATE: 20140731
